FAERS Safety Report 5009141-1 (Version None)
Quarter: 2006Q2

REPORT INFORMATION
  Report Type: 
  Country: None (occurrence: None)
  Receive Date: 20060518
  Receipt Date: 20060509
  Transmission Date: 20061013
  Serious: Yes (Other)
  Sender: FDA-Public Use
  Company Number: HQWYE250110MAY06

PATIENT
  Age: 69 Year
  Sex: Male

DRUGS (8)
  1. CORDARONE [Suspect]
     Indication: VENTRICULAR TACHYCARDIA
     Dosage: 200 MG 1X PER 1 DAY, ORAL
     Route: 048
  2. ASPIRIN [Concomitant]
  3. LANSOPRAZOLE [Concomitant]
  4. LEVOTHYROXINE SODIUM [Concomitant]
  5. METHOCARBAMOL [Concomitant]
  6. METOPROLOL SUCCINATE [Concomitant]
  7. OXYCODONE (OXYCODONE) [Concomitant]
  8. RISPERIDONE [Concomitant]

REACTIONS (5)
  - CARDIAC MURMUR [None]
  - HYPERHIDROSIS [None]
  - LUNG INFILTRATION [None]
  - PULMONARY ALVEOLAR HAEMORRHAGE [None]
  - WEIGHT DECREASED [None]
